FAERS Safety Report 17981261 (Version 4)
Quarter: 2023Q2

REPORT INFORMATION
  Report Type: Spontaneous
  Country: PL (occurrence: PL)
  Receive Date: 20200705
  Receipt Date: 20230607
  Transmission Date: 20230722
  Serious: Yes (Death, Other)
  Sender: FDA-Public Use
  Company Number: PL-NOVARTISPH-NVSC2020PL188935

PATIENT
  Age: 61 Year
  Sex: Male

DRUGS (34)
  1. FENTANYL [Suspect]
     Active Substance: FENTANYL
     Indication: Cancer pain
     Dosage: 50 UG, QD
     Route: 062
     Dates: start: 201603, end: 2016
  2. FENTANYL [Suspect]
     Active Substance: FENTANYL
     Indication: Pain
     Dosage: 50 MICROGRAM, Q72H
     Route: 062
     Dates: start: 2016, end: 2016
  3. FENTANYL [Suspect]
     Active Substance: FENTANYL
     Dosage: 200 UG, 3-4 TIMES A DAY
     Route: 002
  4. FENTANYL [Suspect]
     Active Substance: FENTANYL
     Dosage: 200 UG, QH
     Route: 062
  5. FENTANYL [Suspect]
     Active Substance: FENTANYL
     Dosage: 400 UG, 3 TO 4 TIMES A DAY
     Route: 002
  6. KETOPROFEN [Suspect]
     Active Substance: KETOPROFEN
     Indication: Pain
     Dosage: 100 MILLIGRAM, BID
     Route: 065
     Dates: start: 201603
  7. KETOPROFEN [Suspect]
     Active Substance: KETOPROFEN
     Dosage: 100 MILLIGRAM, BID -MAR-2016
     Route: 065
     Dates: start: 201605
  8. DICLOFENAC SODIUM [Suspect]
     Active Substance: DICLOFENAC SODIUM
     Indication: Pain
     Dosage: 100 MG, Q12H (100 MG, BID)
     Route: 065
  9. DOCETAXEL [Suspect]
     Active Substance: DOCETAXEL
     Indication: Chemotherapy
     Dosage: 50 MG/M2, 8 ADMINISTRATIONS
     Route: 065
  10. DENOSUMAB [Suspect]
     Active Substance: DENOSUMAB
     Indication: Prostate cancer
     Dosage: 120 MILLIGRAM
     Route: 058
     Dates: start: 201603
  11. GABAPENTIN [Suspect]
     Active Substance: GABAPENTIN
     Indication: Pain
     Dosage: 0.3 G, TID
     Route: 065
     Dates: start: 201603, end: 2016
  12. GABAPENTIN [Suspect]
     Active Substance: GABAPENTIN
     Dosage: 150 MG, QD
     Route: 065
  13. GABAPENTIN [Suspect]
     Active Substance: GABAPENTIN
     Dosage: 900 MG
     Route: 065
  14. GABAPENTIN [Suspect]
     Active Substance: GABAPENTIN
     Dosage: 300 MILLIGRAM
     Route: 065
  15. BICALUTAMIDE [Suspect]
     Active Substance: BICALUTAMIDE
     Indication: Prostate cancer
     Dosage: 50 MILLIGRAM, QD
     Route: 065
     Dates: start: 201603
  16. MORPHINE SULFATE [Suspect]
     Active Substance: MORPHINE SULFATE
     Indication: Pain
     Dosage: 0.02 G, QID (FAST-RELEASE)
     Route: 048
     Dates: start: 201603
  17. MORPHINE SULFATE [Suspect]
     Active Substance: MORPHINE SULFATE
     Indication: Cancer pain
     Dosage: 20 MG
     Route: 065
  18. ACETAMINOPHEN\TRAMADOL [Suspect]
     Active Substance: ACETAMINOPHEN\TRAMADOL
     Indication: Analgesic therapy
     Dosage: 1 DOSAGE FORM TRAMADOL HYDROCHLORIDE/ PARACETAMOL 75/650 MG/MG, QID, AS NEEDED
     Route: 065
  19. TRAMADOL HYDROCHLORIDE [Suspect]
     Active Substance: TRAMADOL HYDROCHLORIDE
     Indication: Pain
     Dosage: 37.5 MG, ADHOC UPTO 4 TIMES DAILY
     Route: 065
  20. LEUPROLIDE ACETATE [Suspect]
     Active Substance: LEUPROLIDE ACETATE
     Indication: Hormone therapy
     Dosage: UNK, Q3MO
     Route: 065
  21. LEUPROLIDE ACETATE [Suspect]
     Active Substance: LEUPROLIDE ACETATE
     Indication: Prostate cancer
     Dosage: UNK, EVERY SIX MONTHS
     Route: 065
  22. ACETAMINOPHEN [Suspect]
     Active Substance: ACETAMINOPHEN
     Indication: Pain
     Dosage: 375 MG, ADHOC UPTO 4 TIMES DAILY
     Route: 065
  23. VITAMIN D3 [Concomitant]
     Active Substance: CHOLECALCIFEROL
     Indication: Product used for unknown indication
     Dosage: 4000 INTERNATIONAL UNIT, QD
     Route: 065
     Dates: start: 201603
  24. DEXKETOPROFEN [Concomitant]
     Active Substance: DEXKETOPROFEN
     Indication: Product used for unknown indication
     Dosage: 1 DOSAGE FORM, TID
     Route: 065
  25. IRON [Concomitant]
     Active Substance: IRON
     Indication: Product used for unknown indication
     Dosage: UNK
     Route: 065
  26. TAPENTADOL HYDROCHLORIDE [Concomitant]
     Active Substance: TAPENTADOL HYDROCHLORIDE
     Indication: Product used for unknown indication
     Dosage: 100 MG, QD
     Route: 065
  27. TAPENTADOL HYDROCHLORIDE [Concomitant]
     Active Substance: TAPENTADOL HYDROCHLORIDE
     Dosage: 75 MG
     Route: 065
  28. TAPENTADOL HYDROCHLORIDE [Concomitant]
     Active Substance: TAPENTADOL HYDROCHLORIDE
     Dosage: 150 MG, QD
     Route: 065
  29. TAPENTADOL HYDROCHLORIDE [Concomitant]
     Active Substance: TAPENTADOL HYDROCHLORIDE
     Dosage: 0.1 MG, QD (0.05 G, 2X PER DAY (SLOW-RELEASE)
     Route: 065
  30. PREGABALIN [Concomitant]
     Active Substance: PREGABALIN
     Indication: Product used for unknown indication
     Dosage: 0.15 GRAM, QD
     Route: 065
  31. PREGABALIN [Concomitant]
     Active Substance: PREGABALIN
     Dosage: 0.15 G, BID
     Route: 065
  32. ABIRATERONE ACETATE [Concomitant]
     Active Substance: ABIRATERONE ACETATE
     Indication: Product used for unknown indication
     Dosage: UNK
     Route: 065
  33. METAMIZOLE SODIUM [Concomitant]
     Active Substance: METAMIZOLE SODIUM
     Indication: Product used for unknown indication
     Dosage: 2 DF, UP TO 4 TIMES PER DAY
     Route: 065
  34. NIMESULIDE [Concomitant]
     Active Substance: NIMESULIDE
     Indication: Product used for unknown indication
     Dosage: UNK, 1-0-1
     Route: 065

REACTIONS (19)
  - Chronic kidney disease [Fatal]
  - Confusional state [Fatal]
  - Quality of life decreased [Fatal]
  - Polyneuropathy in malignant disease [Fatal]
  - Decreased appetite [Fatal]
  - Allodynia [Fatal]
  - Constipation [Fatal]
  - Dermatitis allergic [Fatal]
  - Polyneuropathy [Fatal]
  - Drug ineffective [Fatal]
  - Metastases to lung [Unknown]
  - Hyperaesthesia [Recovered/Resolved]
  - Anaemia [Unknown]
  - Toxicity to various agents [Recovered/Resolved]
  - Metastases to bone [Unknown]
  - Drug dependence [Recovered/Resolved]
  - Product use in unapproved indication [Unknown]
  - Prostate cancer [Unknown]
  - Malignant neoplasm progression [Unknown]

NARRATIVE: CASE EVENT DATE: 20160101
